FAERS Safety Report 23667504 (Version 1)
Quarter: 2024Q1

REPORT INFORMATION
  Report Type: Spontaneous
  Country: FR (occurrence: FR)
  Receive Date: 20240325
  Receipt Date: 20240325
  Transmission Date: 20240409
  Serious: Yes (Death, Other)
  Sender: FDA-Public Use
  Company Number: FR-EMA-DD-20191210-jain_h1-090922

PATIENT
  Age: 73 Year
  Sex: Female
  Weight: 85 kg

DRUGS (4)
  1. OXALIPLATIN [Suspect]
     Active Substance: OXALIPLATIN
     Indication: Colon cancer metastatic
     Dosage: UNK
     Route: 042
     Dates: start: 20060510, end: 20060511
  2. ERBITUX [Suspect]
     Active Substance: CETUXIMAB
     Indication: Colorectal cancer
     Dosage: 492 MILLIGRAM, EVERY WEEK
     Route: 042
     Dates: start: 20060510, end: 20060517
  3. AVASTIN [Suspect]
     Active Substance: BEVACIZUMAB
     Indication: Colon cancer metastatic
     Dosage: 650 MILLIGRAM, ONCE A DAY
     Route: 042
     Dates: start: 20060510, end: 20060511
  4. XELODA [Suspect]
     Active Substance: CAPECITABINE
     Indication: Colon cancer metastatic
     Dosage: UNK, ONCE A DAY
     Route: 048
     Dates: start: 20060510, end: 20060522

REACTIONS (1)
  - Pulmonary embolism [Fatal]

NARRATIVE: CASE EVENT DATE: 20060524
